FAERS Safety Report 6911703-9 (Version None)
Quarter: 2010Q3

REPORT INFORMATION
  Report Type: 
  Country: None (occurrence: None)
  Receive Date: 20100806
  Receipt Date: 20100803
  Transmission Date: 20110219
  Serious: Yes (Disabling, Other)
  Sender: FDA-Public Use
  Company Number: BR-BAYER-201016199LA

PATIENT
  Age: 65 Year
  Sex: Male
  Weight: 79 kg

DRUGS (6)
  1. CIPRO [Suspect]
     Indication: PROSTATITIS
     Route: 048
     Dates: start: 20100526, end: 20100622
  2. ARADOIS [Concomitant]
     Indication: HYPERTENSION
     Route: 048
     Dates: start: 19940101
  3. ARELIX [Concomitant]
     Indication: HYPERTENSION
     Route: 048
     Dates: start: 19940101
  4. CIALIS [Concomitant]
     Indication: ANGINA UNSTABLE
     Route: 048
     Dates: start: 20070101
  5. LORAX [Concomitant]
     Indication: ANXIETY DISORDER
     Dosage: 2 TABLETS AT NIGHT, 1 TABLET PER DAY - EVENTUALLY
     Route: 048
     Dates: start: 20000101
  6. ZOLPIDEM [Concomitant]
     Indication: SLEEP DISORDER
     Dosage: 1 TABLET AT NIGHT
     Route: 048
     Dates: start: 20090101

REACTIONS (14)
  - ABDOMINAL PAIN [None]
  - ABDOMINAL PAIN UPPER [None]
  - ABNORMAL DREAMS [None]
  - ACHOLIA [None]
  - ASTHENIA [None]
  - CHILLS [None]
  - CHOLURIA [None]
  - DECREASED APPETITE [None]
  - DIARRHOEA [None]
  - FLATULENCE [None]
  - HALLUCINATION [None]
  - HEPATIC STEATOSIS [None]
  - HEPATITIS [None]
  - NAUSEA [None]
